FAERS Safety Report 9671327 (Version 6)
Quarter: 2013Q4

REPORT INFORMATION
  Report Type: Report from Study
  Country: CA (occurrence: CA)
  Receive Date: 20131106
  Receipt Date: 20131230
  Transmission Date: 20140711
  Serious: Yes (Hospitalization, Other)
  Sender: FDA-Public Use
  Company Number: CA-ROCHE-1273585

PATIENT
  Age: 50 Year
  Sex: Female
  Weight: 72.7 kg

DRUGS (13)
  1. ACTEMRA [Suspect]
     Indication: RHEUMATOID ARTHRITIS
     Route: 042
     Dates: start: 20130607, end: 20131021
  2. RITUXAN [Suspect]
     Indication: RHEUMATOID ARTHRITIS
     Dosage: FREQUENCY DAY 1 AND 15
     Route: 042
     Dates: start: 20131224
  3. PREDNISONE [Concomitant]
  4. METHOTREXATE [Concomitant]
     Route: 065
  5. IBUPROFEN [Concomitant]
  6. VITAMIN C [Concomitant]
  7. MELOXICAM [Concomitant]
  8. WARFARIN [Concomitant]
  9. HYDROXYCHLOROQUINE [Concomitant]
     Route: 065
  10. ISONIAZID [Concomitant]
     Route: 065
  11. FOLIC ACID [Concomitant]
  12. VITAMIN B6 [Concomitant]
  13. SULFASALAZINE [Concomitant]
     Route: 065

REACTIONS (6)
  - Deep vein thrombosis [Unknown]
  - Tuberculin test positive [Unknown]
  - Limb operation [Unknown]
  - Abdominal pain upper [Unknown]
  - Nausea [Unknown]
  - Infusion related reaction [Recovered/Resolved]
